FAERS Safety Report 7499061-5 (Version None)
Quarter: 2011Q2

REPORT INFORMATION
  Report Type: 
  Country: None (occurrence: None)
  Receive Date: 20110524
  Receipt Date: 20110509
  Transmission Date: 20111010
  Serious: Yes (Hospitalization)
  Sender: FDA-Public Use
  Company Number: US-BAYER-201015378NA

PATIENT
  Age: 44 Year
  Sex: Female
  Weight: 77 kg

DRUGS (10)
  1. ACETAMINOPHEN [Concomitant]
     Indication: HEADACHE
     Dosage: VARIOUS
  2. IBUPROFEN [Concomitant]
     Indication: PAIN IN EXTREMITY
     Dosage: VARIOUS
  3. LORCET-HD [Concomitant]
  4. YASMIN [Suspect]
     Indication: MENSTRUAL CYCLE MANAGEMENT
  5. RESTORIL [Concomitant]
  6. MORPHINE [Concomitant]
     Indication: PAIN MANAGEMENT
  7. PHENERGAN HCL [Concomitant]
  8. DEMEROL [Concomitant]
  9. YASMIN [Suspect]
     Indication: MUSCLE SPASMS
     Dosage: 1 DF, QD
     Route: 048
     Dates: start: 20050701, end: 20070222
  10. VENLAFAXINE [Concomitant]
     Indication: HOT FLUSH

REACTIONS (4)
  - PAIN IN EXTREMITY [None]
  - DEEP VEIN THROMBOSIS [None]
  - OEDEMA PERIPHERAL [None]
  - SKIN DISCOLOURATION [None]
